FAERS Safety Report 13712720 (Version 1)
Quarter: 2017Q3

REPORT INFORMATION
  Report Type: Report from Study
  Country: ES (occurrence: ES)
  Receive Date: 20170703
  Receipt Date: 20170703
  Transmission Date: 20171127
  Serious: Yes (Other)
  Sender: FDA-Public Use
  Company Number: ES-GILEAD-2017-0280912

PATIENT
  Age: 68 Year
  Sex: Male
  Weight: 67 kg

DRUGS (7)
  1. LACTULOSE. [Concomitant]
     Active Substance: LACTULOSE
     Dosage: UNK
  2. SOFOSBUVIR [Suspect]
     Active Substance: SOFOSBUVIR
     Indication: CHRONIC HEPATITIS C
     Dosage: UNK
     Route: 065
     Dates: start: 201401, end: 201407
  3. SPIRONOLACTONE. [Concomitant]
     Active Substance: SPIRONOLACTONE
     Dosage: UNK
  4. EVEROLIMUS [Concomitant]
     Active Substance: EVEROLIMUS
     Dosage: UNK
  5. TACROLIMUS. [Concomitant]
     Active Substance: TACROLIMUS
     Dosage: UNK
  6. SUMIAL [Concomitant]
     Active Substance: PROPRANOLOL HYDROCHLORIDE
     Dosage: UNK
  7. RIBAVIRIN. [Suspect]
     Active Substance: RIBAVIRIN
     Indication: CHRONIC HEPATITIS C
     Dosage: UNK
     Route: 065
     Dates: start: 201401, end: 201407

REACTIONS (4)
  - Hypoalbuminaemia [Unknown]
  - Hepatitis C [Unknown]
  - Drug ineffective [Unknown]
  - Ascites [Unknown]
